FAERS Safety Report 12337706 (Version 1)
Quarter: 2016Q2

REPORT INFORMATION
  Report Type: Spontaneous
  Country: US (occurrence: None)
  Receive Date: 20160504
  Receipt Date: 20160504
  Transmission Date: 20160815
  Serious: No
  Sender: FDA-Public Use
  Company Number: None

PATIENT
  Sex: Female

DRUGS (1)
  1. COPAXONE [Suspect]
     Active Substance: GLATIRAMER ACETATE
     Indication: MULTIPLE SCLEROSIS
     Route: 058
     Dates: start: 20160412

REACTIONS (7)
  - Dizziness [None]
  - Dyspnoea [None]
  - Asthenia [None]
  - Chest pain [None]
  - Nausea [None]
  - Pain [None]
  - Insomnia [None]
